FAERS Safety Report 7218616-6 (Version None)
Quarter: 2011Q1

REPORT INFORMATION
  Report Type: 
  Country: None (occurrence: None)
  Receive Date: 20110110
  Receipt Date: 20101231
  Transmission Date: 20110831
  Serious: Yes (Death)
  Sender: FDA-Public Use
  Company Number: US-PFIZER INC-2011002690

PATIENT
  Age: 50 Year
  Sex: Female

DRUGS (7)
  1. ACETAMINOPHEN/DIPHENHYDRAMINE [Suspect]
     Route: 048
  2. PROPRANOLOL [Suspect]
     Route: 048
  3. BUSPIRONE [Suspect]
     Route: 048
  4. DOXEPIN HCL [Suspect]
     Route: 048
  5. TRAZODONE [Suspect]
     Route: 048
  6. DIAZEPAM [Suspect]
     Route: 048
  7. TEMAZEPAM [Suspect]
     Route: 048

REACTIONS (3)
  - COMPLETED SUICIDE [None]
  - RESPIRATORY ARREST [None]
  - CARDIAC ARREST [None]
